FAERS Safety Report 8535504-3 (Version None)
Quarter: 2012Q3

REPORT INFORMATION
  Report Type: 
  Country: None (occurrence: None)
  Receive Date: 20120718
  Receipt Date: 20120718
  Transmission Date: 20120928
  Serious: Yes (Disabling, Other)
  Sender: FDA-Public Use
  Company Number: None

PATIENT
  Age: 60 Year
  Sex: Female
  Weight: 58.0604 kg

DRUGS (3)
  1. XALATAN [Concomitant]
  2. TRAMADOL HCL [Suspect]
     Indication: BACK PAIN
     Dosage: 2 EVERY 4 HOURS PO
     Route: 048
     Dates: start: 20111201, end: 20120717
  3. AZOPT [Concomitant]

REACTIONS (2)
  - CONDITION AGGRAVATED [None]
  - GLAUCOMA [None]
